FAERS Safety Report 9269387 (Version 2)
Quarter: 2013Q2

REPORT INFORMATION
  Report Type: Report from Study
  Country: JP (occurrence: JP)
  Receive Date: 20130503
  Receipt Date: 20130613
  Transmission Date: 20140414
  Serious: Yes (Other)
  Sender: FDA-Public Use
  Company Number: JP-JNJFOC-20130417037

PATIENT
  Age: 61 Year
  Sex: Female
  Weight: 67 kg

DRUGS (17)
  1. SIMPONI [Suspect]
     Indication: RHEUMATOID ARTHRITIS
     Route: 058
     Dates: start: 20120728
  2. PREDNISOLONE [Suspect]
     Indication: RHEUMATOID ARTHRITIS
     Route: 048
     Dates: start: 20120925, end: 20121215
  3. PREDNISOLONE [Suspect]
     Indication: RHEUMATOID ARTHRITIS
     Route: 048
     Dates: start: 20080216, end: 20120924
  4. METHOTREXATE [Suspect]
     Indication: RHEUMATOID ARTHRITIS
     Dates: start: 20080216
  5. AMPIROXICAM [Concomitant]
     Indication: RHEUMATOID ARTHRITIS
     Route: 048
  6. CRESTOR [Concomitant]
     Indication: HYPERCHOLESTEROLAEMIA
     Route: 048
  7. NESINA [Concomitant]
     Indication: DIABETES MELLITUS
     Route: 048
  8. AMARYL [Concomitant]
     Indication: DIABETES MELLITUS
     Route: 048
  9. VOGLIBOSE [Concomitant]
     Indication: DIABETES MELLITUS
     Route: 048
  10. CLARITHROMYCIN [Concomitant]
     Route: 048
  11. PARIET [Concomitant]
     Indication: PROPHYLAXIS
     Route: 048
  12. AMBROXOL HYDROCHLORIDE [Concomitant]
     Indication: BRONCHIOLITIS
     Route: 048
  13. HYALEIN [Concomitant]
     Indication: SJOGREN^S SYNDROME
  14. DIAZEPAM [Concomitant]
     Indication: INSOMNIA
     Route: 048
  15. FLOMOX [Concomitant]
     Route: 048
  16. LASIX [Concomitant]
     Indication: OEDEMA
     Route: 048
  17. FOLIC ACID [Concomitant]
     Indication: PROPHYLAXIS
     Route: 048

REACTIONS (2)
  - Enteritis infectious [Recovered/Resolved]
  - Cystitis [Recovered/Resolved]
